FAERS Safety Report 8406392-0 (Version None)
Quarter: 2012Q2

REPORT INFORMATION
  Report Type: 
  Country: None (occurrence: None)
  Receive Date: 20120604
  Receipt Date: 20120601
  Transmission Date: 20120825
  Serious: Yes (Death)
  Sender: FDA-Public Use
  Company Number: PHFR2011GB06174

PATIENT
  Sex: Male

DRUGS (6)
  1. DIAZEPAM [Concomitant]
     Dosage: 1 MG,DAILY
     Route: 048
  2. ARIPIPRAZOLE [Concomitant]
     Dosage: 20 MG,DAILY
     Route: 048
  3. CLOZARIL [Suspect]
     Indication: SCHIZOPHRENIA
     Route: 048
     Dates: start: 19970616
  4. LITHIUM CARBONATE [Concomitant]
     Dosage: 1200 MG, DAILY
     Route: 048
  5. CLOZARIL [Suspect]
     Dosage: 800 MG, DAILY
     Route: 048
  6. FESOTERODINE [Concomitant]
     Dosage: 4 MG, DAILY
     Route: 048

REACTIONS (1)
  - DEATH [None]
